FAERS Safety Report 8070524 (Version 2)
Quarter: 2013Q1

REPORT INFORMATION
  Report Type: Spontaneous
  Country: IN (occurrence: None)
  Receive Date: 20110725
  Receipt Date: 20130329
  Transmission Date: 20140127
  Serious: Yes (Other)
  Sender: FDA-Public Use
  Company Number: AUR-APL-2011-04016

PATIENT
  Age: 42 Year
  Sex: Female

DRUGS (3)
  1. MIRTAZAPINE (MIRTAZAPINE) [Suspect]
  2. FLUOXETINE [Suspect]
  3. ESCITALOPRAM OXALATE [Suspect]

REACTIONS (12)
  - PAIN [None]
  - ASTHENIA [None]
  - DEPRESSION [None]
  - IRRITABILITY [None]
  - LOGORRHOEA [None]
  - PSYCHOMOTOR HYPERACTIVITY [None]
  - SPEECH DISORDER [None]
  - MANIA [None]
  - SUICIDAL IDEATION [None]
  - DEPRESSED MOOD [None]
  - ANHEDONIA [None]
  - Pressure of speech [None]
